FAERS Safety Report 7584366-X (Version None)
Quarter: 2011Q2

REPORT INFORMATION
  Report Type: 
  Country: None (occurrence: None)
  Receive Date: 20110630
  Receipt Date: 20110628
  Transmission Date: 20111010
  Serious: Yes (Other)
  Sender: FDA-Public Use
  Company Number: US-PFIZER INC-2011144404

PATIENT
  Sex: Female
  Weight: 139.68 kg

DRUGS (4)
  1. ATENOLOL [Concomitant]
     Indication: HYPERTENSION
     Dosage: UNK
  2. PROCARDIA XL [Concomitant]
     Indication: HYPERTENSION
     Dosage: UNK
  3. LYRICA [Suspect]
     Indication: FIBROMYALGIA
     Dosage: 50MG AT DAYTIME, 75MG BEFORE BED
     Route: 048
     Dates: start: 20110201, end: 20110401
  4. MIRAPEX [Concomitant]
     Indication: RESTLESS LEGS SYNDROME
     Dosage: UNK

REACTIONS (4)
  - WEIGHT INCREASED [None]
  - PAIN [None]
  - SUICIDE ATTEMPT [None]
  - DEPRESSION [None]
